FAERS Safety Report 8111743-0 (Version None)
Quarter: 2012Q1

REPORT INFORMATION
  Report Type: 
  Country: None (occurrence: None)
  Receive Date: 20120203
  Receipt Date: 20120130
  Transmission Date: 20120608
  Serious: Yes (Other)
  Sender: FDA-Public Use
  Company Number: DK-BAYER-2012-009272

PATIENT
  Age: 91 Year
  Sex: Female

DRUGS (1)
  1. AVELOX [Suspect]
     Indication: PNEUMONIA
     Dosage: 400 MG, HS
     Route: 048
     Dates: start: 20110131, end: 20110220

REACTIONS (3)
  - MUSCULAR DYSTROPHY [None]
  - ASTHENIA [None]
  - WEIGHT DECREASED [None]
